FAERS Safety Report 9976055 (Version 1)
Quarter: 2014Q1

REPORT INFORMATION
  Report Type: Spontaneous
  Country: US (occurrence: US)
  Receive Date: 20140306
  Receipt Date: 20140306
  Transmission Date: 20141002
  Serious: No
  Sender: FDA-Public Use
  Company Number: US-PFIZER INC-2013321951

PATIENT
  Age: 68 Year
  Sex: Male

DRUGS (4)
  1. SUTENT [Suspect]
     Indication: HEPATOCELLULAR CARCINOMA
     Dosage: 50 MG, QD X 4 WKS OFF 2 WKS
     Route: 048
     Dates: start: 20130928
  2. FUROSEMIDE [Concomitant]
     Dosage: UNK
  3. SPIRONOLACTONE [Concomitant]
     Dosage: UNK
  4. OXYCODONE [Concomitant]
     Dosage: UNK

REACTIONS (2)
  - Skin reaction [Unknown]
  - Off label use [Unknown]
